FAERS Safety Report 23735142 (Version 1)
Quarter: 2024Q2

REPORT INFORMATION
  Report Type: Spontaneous
  Country: CN (occurrence: CN)
  Receive Date: 20240412
  Receipt Date: 20240412
  Transmission Date: 20240715
  Serious: Yes (Other)
  Sender: FDA-Public Use
  Company Number: CN-002147023-NVSC2024CN076031

PATIENT
  Age: 42 Year
  Sex: Female
  Weight: 62 kg

DRUGS (1)
  1. TOBRADEX [Suspect]
     Active Substance: DEXAMETHASONE\TOBRAMYCIN
     Indication: Conjunctivitis allergic
     Dosage: 1.000 DRP, BID
     Route: 047
     Dates: start: 20240208

REACTIONS (2)
  - Ocular hypertension [Recovering/Resolving]
  - Swelling of eyelid [Unknown]

NARRATIVE: CASE EVENT DATE: 20240318
